FAERS Safety Report 8264153-X (Version None)
Quarter: 2012Q2

REPORT INFORMATION
  Report Type: 
  Country: None (occurrence: None)
  Receive Date: 20120406
  Receipt Date: 20120328
  Transmission Date: 20120825
  Serious: Yes (Hospitalization, Other)
  Sender: FDA-Public Use
  Company Number: BE-PAR PHARMACEUTICAL, INC-2011SCPR003285

PATIENT

DRUGS (2)
  1. DISULFIRAM [Suspect]
     Indication: PRODUCT USED FOR UNKNOWN INDICATION
     Dosage: 1.2 G, PER DAY
     Route: 065
  2. THIAMINE HCL [Concomitant]
     Indication: WERNICKE-KORSAKOFF SYNDROME
     Dosage: 1.5 G, / DAY
     Route: 065

REACTIONS (5)
  - POSTERIOR REVERSIBLE ENCEPHALOPATHY SYNDROME [None]
  - RADICULOPATHY [None]
  - TOXICITY TO VARIOUS AGENTS [None]
  - WEIGHT DECREASED [None]
  - ABNORMAL BEHAVIOUR [None]
